FAERS Safety Report 18013662 (Version 2)
Quarter: 2020Q3

REPORT INFORMATION
  Report Type: Spontaneous
  Country: FR (occurrence: FR)
  Receive Date: 20200713
  Receipt Date: 20200720
  Transmission Date: 20201103
  Serious: Yes (Other)
  Sender: FDA-Public Use
  Company Number: FR-US-PROVELL PHARMACEUTICALS LLC-9022295

PATIENT
  Age: 57 Year
  Sex: Female
  Weight: 61 kg

DRUGS (1)
  1. LEVOTHYROX [Suspect]
     Active Substance: LEVOTHYROXINE
     Indication: HYPOTHYROIDISM
     Dates: start: 2017, end: 20171030

REACTIONS (26)
  - Headache [Unknown]
  - Balance disorder [Unknown]
  - Blood triglycerides increased [Unknown]
  - Vestibular disorder [Unknown]
  - Gait disturbance [Unknown]
  - Loss of personal independence in daily activities [Unknown]
  - Muscle fatigue [Unknown]
  - Dysstasia [Unknown]
  - Mental disorder [Recovering/Resolving]
  - Feeling abnormal [Unknown]
  - Wrong technique in product usage process [Unknown]
  - Vertigo [Not Recovered/Not Resolved]
  - Fall [Unknown]
  - Sleep disorder [Not Recovered/Not Resolved]
  - Dysphagia [Unknown]
  - Confusional state [Unknown]
  - Anxiety [Unknown]
  - Anxiety [Not Recovered/Not Resolved]
  - Malaise [Recovering/Resolving]
  - Fatigue [Recovering/Resolving]
  - Alopecia [Recovering/Resolving]
  - Mobility decreased [Unknown]
  - Blood thyroid stimulating hormone decreased [Unknown]
  - Restlessness [Unknown]
  - Autonomic failure syndrome [Unknown]
  - Tooth loss [Recovering/Resolving]

NARRATIVE: CASE EVENT DATE: 2017
